FAERS Safety Report 8716078 (Version 2)
Quarter: 2013Q4

REPORT INFORMATION
  Report Type: Spontaneous
  Country: US (occurrence: US)
  Receive Date: 20120809
  Receipt Date: 20131025
  Transmission Date: 20140711
  Serious: Yes (Hospitalization, Other)
  Sender: FDA-Public Use
  Company Number: US-BAYER-2012-079206

PATIENT
  Age: 24 Year
  Sex: Female
  Weight: 75 kg

DRUGS (1)
  1. MIRENA [Suspect]
     Dosage: 20 MCG/24HR, CONT
     Route: 015
     Dates: start: 20060822, end: 20110909

REACTIONS (10)
  - Device dislocation [None]
  - Uterine perforation [None]
  - Pain [None]
  - Injury [None]
  - Scar [None]
  - Female sterilisation [None]
  - Infertility female [None]
  - Emotional distress [None]
  - Depression [None]
  - Anxiety [None]
